FAERS Safety Report 16934012 (Version 1)
Quarter: 2020Q3

REPORT INFORMATION
  Report Type: Spontaneous
  Country: US (occurrence: US)
  Receive Date: 20191018
  Receipt Date: 20191018
  Transmission Date: 20201104
  Serious: Yes (Other)
  Sender: FDA-Public Use
  Company Number: US-TEVA-604145USA

PATIENT
  Sex: Female

DRUGS (12)
  1. BUPRENORPHINE. [Suspect]
     Active Substance: BUPRENORPHINE
     Dosage: 16 MILLIGRAM DAILY;
     Route: 064
  2. BUPRENORPHINE. [Suspect]
     Active Substance: BUPRENORPHINE
     Route: 063
  3. NICOTINE. [Suspect]
     Active Substance: NICOTINE
     Dosage: 10 CIGARETTES A DAY
     Route: 064
  4. OXYCODONE [Suspect]
     Active Substance: OXYCODONE
     Dosage: 10 CIGARETTES A DAY
     Route: 063
  5. LEVOTHYROXINE. [Suspect]
     Active Substance: LEVOTHYROXINE
     Dosage: 50 MICROGRAM DAILY;
     Route: 064
  6. OMEPRAZOLE. [Suspect]
     Active Substance: OMEPRAZOLE
     Dosage: 20 MILLIGRAM DAILY;
     Route: 064
  7. FERROUS SULFATE. [Suspect]
     Active Substance: FERROUS SULFATE
     Dosage: 325 MILLIGRAM DAILY;
     Route: 064
  8. PROAIR HFA [Suspect]
     Active Substance: ALBUTEROL SULFATE
     Route: 064
  9. NICOTINE. [Suspect]
     Active Substance: NICOTINE
     Dosage: 10 CIGARETTES A DAY
     Route: 063
  10. OXYCODONE [Suspect]
     Active Substance: OXYCODONE
     Route: 064
  11. PRENATAL VITAMINS [Suspect]
     Active Substance: VITAMINS
     Dosage: 10 CIGARETTES A DAY
     Route: 063
  12. PRENATAL VITAMINS [Suspect]
     Active Substance: VITAMINS
     Route: 064

REACTIONS (5)
  - Neonatal aspiration [Unknown]
  - Drug withdrawal syndrome neonatal [Unknown]
  - Maternal exposure during breast feeding [Unknown]
  - Foetal exposure during pregnancy [Unknown]
  - Respiratory disorder neonatal [Unknown]
